FAERS Safety Report 24904550 (Version 8)
Quarter: 2025Q4

REPORT INFORMATION
  Report Type: Spontaneous
  Country: CA (occurrence: CA)
  Receive Date: 20250130
  Receipt Date: 20251120
  Transmission Date: 20260118
  Serious: Yes (Hospitalization, Other)
  Sender: CELLTRION
  Company Number: CA-PFIZER INC-202500008954

PATIENT

DRUGS (5)
  1. INFLIXIMAB [Suspect]
     Active Substance: INFLIXIMAB
     Indication: Crohn^s disease
     Dosage: 300 MILLIGRAM
     Route: 042
  2. INFLIXIMAB [Suspect]
     Active Substance: INFLIXIMAB
     Dosage: 300 MILLIGRAM
     Route: 042
  3. INFLECTRA [Suspect]
     Active Substance: INFLIXIMAB-DYYB
     Indication: Crohn^s disease
     Dosage: 300 MG, AT 0, 2, 6, THEN EVERY 8 WEEKS
     Route: 042
     Dates: start: 20240215, end: 20240521
  4. INFLECTRA [Suspect]
     Active Substance: INFLIXIMAB-DYYB
     Dosage: 300 MG, EVERY 6 WEEKS (10MG/KG)
     Route: 042
     Dates: start: 20250108
  5. IBUPROFEN [Concomitant]
     Active Substance: IBUPROFEN
     Dosage: UNK

REACTIONS (28)
  - Blood pressure systolic inspiratory decreased [Recovered/Resolved]
  - Blood creatinine increased [Recovered/Resolved]
  - Cardiac tamponade [Recovering/Resolving]
  - Cardiomegaly [Recovered/Resolved]
  - Enteritis [Recovered/Resolved]
  - Fistula [Recovered/Resolved]
  - Fistula discharge [Recovered/Resolved]
  - Hypokinesia [Recovered/Resolved]
  - Influenza like illness [Recovered/Resolved]
  - Malaise [Recovered/Resolved]
  - Productive cough [Recovered/Resolved]
  - Renal injury [Recovered/Resolved]
  - Tricuspid valve incompetence [Recovered/Resolved]
  - Weight decreased [Recovered/Resolved]
  - Atrial fibrillation [Recovering/Resolving]
  - Pericardial effusion malignant [Recovering/Resolving]
  - Chest pain [Recovered/Resolved]
  - Ileal stenosis [Recovered/Resolved]
  - Viral pericarditis [Recovering/Resolving]
  - Emphysematous cystitis [Recovered/Resolved]
  - Viral infection [Recovered/Resolved]
  - Urinary tract infection [Recovered/Resolved]
  - Abdominal pain [Recovering/Resolving]
  - Dyspnoea [Recovered/Resolved]
  - Upper respiratory tract infection [Recovered/Resolved]
  - Purulence [Recovered/Resolved]
  - Lyme disease [Unknown]
  - Drug level below therapeutic [Recovered/Resolved]

NARRATIVE: CASE EVENT DATE: 20240101
